FAERS Safety Report 18459711 (Version 1)
Quarter: 2020Q4

REPORT INFORMATION
  Report Type: Other
  Country: SE (occurrence: SE)
  Receive Date: 20201103
  Receipt Date: 20201103
  Transmission Date: 20210114
  Serious: Yes (Life-Threatening, Hospitalization)
  Sender: FDA-Public Use
  Company Number: SE-GE HEALTHCARE LIFE SCIENCES-2020CSU005253

PATIENT

DRUGS (3)
  1. BUSCOPAN [Suspect]
     Active Substance: BUTYLSCOPOLAMINE BROMIDE
     Indication: PRODUCT USED FOR UNKNOWN INDICATION
     Route: 042
     Dates: start: 20200420, end: 20200420
  2. OMNIPAQUE [Suspect]
     Active Substance: IOHEXOL
     Indication: COMPUTERISED TOMOGRAM
     Dosage: 136 ML, SINGLE
     Route: 042
     Dates: start: 20200420, end: 20200420
  3. OMNIPAQUE [Suspect]
     Active Substance: IOHEXOL
     Indication: PRODUCT USED FOR UNKNOWN INDICATION

REACTIONS (7)
  - Urticaria [Recovered/Resolved]
  - Lip swelling [Recovered/Resolved]
  - Musculoskeletal stiffness [Recovered/Resolved]
  - Hypersensitivity [Recovered/Resolved]
  - Oxygen saturation decreased [Recovered/Resolved]
  - Mouth swelling [Recovered/Resolved]
  - Blood pressure decreased [Recovered/Resolved]

NARRATIVE: CASE EVENT DATE: 20200420
